FAERS Safety Report 14925859 (Version 1)
Quarter: 2018Q2

REPORT INFORMATION
  Report Type: Report from Study
  Country: US (occurrence: US)
  Receive Date: 20180522
  Receipt Date: 20180522
  Transmission Date: 20180711
  Serious: Yes (Hospitalization)
  Sender: FDA-Public Use
  Company Number: US-GILEAD-2018-0339739

PATIENT
  Sex: Male

DRUGS (1)
  1. IDELALISIB [Suspect]
     Active Substance: IDELALISIB
     Indication: LEUKAEMIA
     Dosage: 150 MG, BID
     Route: 048

REACTIONS (4)
  - Cardiac disorder [Unknown]
  - Nervousness [Unknown]
  - Vomiting [Unknown]
  - Abdominal discomfort [Unknown]
